FAERS Safety Report 21383342 (Version 1)
Quarter: 2022Q3

REPORT INFORMATION
  Report Type: Spontaneous
  Country: RU (occurrence: None)
  Receive Date: 20220927
  Receipt Date: 20220927
  Transmission Date: 20221026
  Serious: Yes (Other)
  Sender: FDA-Public Use
  Company Number: 2022A331397

PATIENT
  Sex: Male

DRUGS (6)
  1. DAPAGLIFLOZIN [Suspect]
     Active Substance: DAPAGLIFLOZIN
     Indication: Type 2 diabetes mellitus
     Route: 064
     Dates: start: 202107, end: 20220124
  2. JARDIANCE [Concomitant]
     Active Substance: EMPAGLIFLOZIN
  3. ATORVASTATIN [Concomitant]
     Active Substance: ATORVASTATIN
  4. TRULICITY [Concomitant]
     Active Substance: DULAGLUTIDE
  5. LEVEMIR [Concomitant]
     Active Substance: INSULIN DETEMIR
  6. METFORMIN [Concomitant]
     Active Substance: METFORMIN HYDROCHLORIDE

REACTIONS (1)
  - Diabetic foetopathy [Unknown]
